FAERS Safety Report 22096524 (Version 2)
Quarter: 2023Q1

REPORT INFORMATION
  Report Type: Spontaneous
  Country: JP (occurrence: JP)
  Receive Date: 20230315
  Receipt Date: 20230327
  Transmission Date: 20230418
  Serious: Yes (Hospitalization, Other)
  Sender: FDA-Public Use
  Company Number: JP-BRISTOL-MYERS SQUIBB COMPANY-2023-035131

PATIENT
  Age: 78 Year
  Sex: Female

DRUGS (2)
  1. YERVOY [Suspect]
     Active Substance: IPILIMUMAB
     Indication: Lung adenocarcinoma
     Dosage: 4 COURSES
  2. OPDIVO [Suspect]
     Active Substance: NIVOLUMAB
     Indication: Lung adenocarcinoma
     Dosage: 4 COURSES

REACTIONS (4)
  - Haematochezia [Recovering/Resolving]
  - Secondary adrenocortical insufficiency [Recovering/Resolving]
  - Pulmonary toxicity [Recovering/Resolving]
  - Decreased appetite [Recovering/Resolving]
